FAERS Safety Report 9003571 (Version 9)
Quarter: 2015Q3

REPORT INFORMATION
  Report Type: Report from Study
  Country: JP (occurrence: JP)
  Receive Date: 20130108
  Receipt Date: 20150910
  Transmission Date: 20151125
  Serious: Yes (Death, Life-Threatening, Hospitalization, Other)
  Sender: FDA-Public Use
  Company Number: JP-AMGEN-JPNCT2012084417

PATIENT
  Age: 89 Year
  Sex: Male
  Weight: 54 kg

DRUGS (19)
  1. HOKUNALIN [Concomitant]
     Active Substance: TULOBUTEROL
     Dosage: UNK
     Route: 062
  2. BIO-THREE [Concomitant]
     Active Substance: HERBALS
     Dosage: UNK
     Route: 048
  3. OMEPRAL [Concomitant]
     Active Substance: OMEPRAZOLE
     Dosage: UNK
     Route: 048
  4. URIEF [Concomitant]
     Active Substance: SILODOSIN
     Dosage: UNK
     Route: 048
  5. FERROMIA [Concomitant]
     Active Substance: FERROUS CITRATE
     Dosage: UNK
     Route: 048
  6. FUROSEMIDE. [Concomitant]
     Active Substance: FUROSEMIDE
     Dosage: UNK
     Route: 048
  7. RIKKUNSHITO                        /08041001/ [Concomitant]
     Active Substance: HERBALS
     Dosage: UNK
     Route: 048
  8. IRBETAN [Concomitant]
     Active Substance: IRBESARTAN
     Indication: NEPHROSCLEROSIS
     Dosage: UNK
     Route: 048
  9. CRAVIT [Suspect]
     Active Substance: LEVOFLOXACIN
     Indication: PRODUCT USED FOR UNKNOWN INDICATION
     Dosage: UNK
     Route: 048
     Dates: end: 20120306
  10. LUPRAC [Concomitant]
     Active Substance: TORSEMIDE
     Indication: NEPHROSCLEROSIS
     Dosage: UNK
     Route: 048
  11. FRANDOL S [Concomitant]
     Active Substance: ISOSORBIDE DINITRATE
     Dosage: UNK
     Route: 062
  12. FASTIC [Concomitant]
     Active Substance: NATEGLINIDE
     Dosage: UNK
     Route: 048
  13. BISACODYL. [Concomitant]
     Active Substance: BISACODYL
     Dosage: UNK
     Route: 054
  14. GRAMALIL [Concomitant]
     Active Substance: TIAPRIDE HYDROCHLORIDE
     Dosage: UNK
     Route: 048
  15. DARBEPOETIN ALFA - KHK [Suspect]
     Active Substance: DARBEPOETIN ALFA
     Indication: NEPHROGENIC ANAEMIA
     Dosage: 30 MUG, Q2WK
     Route: 058
     Dates: start: 20110826
  16. AVOLVE [Concomitant]
     Active Substance: DUTASTERIDE
     Dosage: UNK
     Route: 048
  17. ADALAT CC [Concomitant]
     Active Substance: NIFEDIPINE
     Dosage: UNK
     Route: 048
  18. ENTERONON-R [Concomitant]
     Active Substance: PROBIOTICS NOS
     Dosage: UNK
     Route: 048
  19. GASTROM [Concomitant]
     Active Substance: ECABET
     Dosage: UNK
     Route: 048

REACTIONS (18)
  - Cellulitis [Recovered/Resolved]
  - Cardiac failure [Recovering/Resolving]
  - Pyrexia [Recovered/Resolved]
  - Anaemia [Recovering/Resolving]
  - Anaemia [Recovering/Resolving]
  - Hyperkalaemia [Recovered/Resolved]
  - Liver disorder [Recovering/Resolving]
  - Lymphoma [Unknown]
  - Decreased appetite [Not Recovered/Not Resolved]
  - Azotaemia [Fatal]
  - Eosinophilia [Recovered/Resolved]
  - Eczema asteatotic [Recovering/Resolving]
  - Vitamin C deficiency [Unknown]
  - Pneumonia mycoplasmal [Recovered/Resolved]
  - Dyspepsia [Recovering/Resolving]
  - Malignant neoplasm of eyelid [Recovering/Resolving]
  - Weight decreased [Recovering/Resolving]
  - Occult blood positive [Unknown]

NARRATIVE: CASE EVENT DATE: 20120110
